FAERS Safety Report 8951596 (Version 4)
Quarter: 2014Q1

REPORT INFORMATION
  Report Type: Spontaneous
  Country: US (occurrence: US)
  Receive Date: 20121204
  Receipt Date: 20140325
  Transmission Date: 20141002
  Serious: Yes (Death, Hospitalization, Other)
  Sender: FDA-Public Use
  Company Number: US-009507513-1212USA001128

PATIENT
  Sex: Female

DRUGS (2)
  1. FOSAMAX [Suspect]
     Indication: OSTEOPOROSIS
     Dosage: 70 MG, WEEKLY
     Route: 048
     Dates: end: 2010
  2. ALENDRONATE SODIUM [Suspect]
     Indication: OSTEOPOROSIS
     Route: 048

REACTIONS (9)
  - Hip fracture [Unknown]
  - Ankle fracture [Unknown]
  - Femur fracture [Unknown]
  - Ankle fracture [Recovering/Resolving]
  - Open reduction of fracture [Unknown]
  - Death [Fatal]
  - Low turnover osteopathy [Unknown]
  - Fall [Unknown]
  - Osteoarthritis [Not Recovered/Not Resolved]
